FAERS Safety Report 9192169 (Version 1)
Quarter: 2013Q1

REPORT INFORMATION
  Report Type: Spontaneous
  Country: IN (occurrence: None)
  Receive Date: 20130325
  Receipt Date: 20130325
  Transmission Date: 20140127
  Serious: Yes (Other)
  Sender: FDA-Public Use
  Company Number: FK201300847

PATIENT
  Sex: Female

DRUGS (2)
  1. METHYLPREDNISOLONE [Suspect]
     Indication: TRANSPLANT REJECTION
     Dosage: PER DAY
  2. PREDNISOLONE (PREDNISOLONE) [Suspect]
     Indication: TRANSPLANT REJECTION
     Dosage: TAPERING DOSE  PER DAY

REACTIONS (2)
  - Leukopenia [None]
  - Cytomegalovirus infection [None]
